FAERS Safety Report 7555237 (Version 2)
Quarter: 2015Q1

REPORT INFORMATION
  Report Type: Report from Study
  Country: JP (occurrence: JP)
  Receive Date: 20100826
  Receipt Date: 20150323
  Transmission Date: 20150721
  Serious: Yes (Death, Life-Threatening, Other)
  Sender: FDA-Public Use
  Company Number: JP-PFIZER INC-2010096983

PATIENT
  Age: 59 Year
  Sex: Female
  Weight: 45.8 kg

DRUGS (9)
  1. DECADRON [Concomitant]
     Active Substance: DEXAMETHASONE
     Indication: RENAL CELL CARCINOMA
     Dosage: 0.5 MG, 1X/DAY
     Dates: start: 20091104, end: 20091111
  2. FAMOTIDINE. [Concomitant]
     Active Substance: FAMOTIDINE
     Indication: RENAL CELL CARCINOMA
     Dosage: 10 MG, 2X/DAY
     Route: 048
     Dates: start: 20091104, end: 20091201
  3. SUNITINIB MALATE [Suspect]
     Active Substance: SUNITINIB MALATE
     Dosage: 37.5 MG, DAILY
     Route: 048
     Dates: start: 20100106, end: 20100122
  4. SAWACILLIN [Concomitant]
     Active Substance: AMOXICILLIN
     Indication: RENAL CELL CARCINOMA
     Dosage: 250 MG, 3X/DAY
     Route: 048
     Dates: start: 20091117
  5. SUNITINIB MALATE [Suspect]
     Active Substance: SUNITINIB MALATE
     Dosage: 37.5 MG, DAILY
     Route: 048
     Dates: end: 20100212
  6. SUNITINIB MALATE [Suspect]
     Active Substance: SUNITINIB MALATE
     Indication: RENAL CELL CARCINOMA
     Dosage: 50 MG, 1X/DAY
     Route: 048
     Dates: start: 20091110, end: 20091117
  7. SUNITINIB MALATE [Suspect]
     Active Substance: SUNITINIB MALATE
     Dosage: 37.5 MG, DAILY
     Route: 048
     Dates: start: 20100129, end: 20100203
  8. AUGMENTIN [Concomitant]
     Active Substance: AMOXICILLIN\CLAVULANATE POTASSIUM
     Indication: RENAL CELL CARCINOMA
     Dosage: 200 MG, 3X/DAY
     Route: 048
     Dates: start: 20091117, end: 20091207
  9. DEPAKENE [Concomitant]
     Active Substance: VALPROIC ACID
     Indication: RENAL CELL CARCINOMA
     Dosage: 100 MG, 2X/DAY
     Route: 048
     Dates: start: 20091104

REACTIONS (4)
  - Cerebral haemorrhage [Not Recovered/Not Resolved]
  - Platelet count decreased [Recovering/Resolving]
  - Infection [Recovering/Resolving]
  - Death [Fatal]

NARRATIVE: CASE EVENT DATE: 20091115
